FAERS Safety Report 9057830 (Version 7)
Quarter: 2016Q3

REPORT INFORMATION
  Report Type: Spontaneous
  Country: US (occurrence: US)
  Receive Date: 20130204
  Receipt Date: 20160714
  Transmission Date: 20161109
  Serious: Yes (Other)
  Sender: FDA-Public Use
  Company Number: US-009507513-1301USA013372

PATIENT
  Sex: Male
  Weight: 76.19 kg

DRUGS (4)
  1. FINASTERIDE. [Suspect]
     Active Substance: FINASTERIDE
     Indication: ALOPECIA
     Dosage: 2.5 MG, QD
     Route: 048
     Dates: start: 20090202, end: 20101108
  2. PROPECIA [Suspect]
     Active Substance: FINASTERIDE
     Indication: ALOPECIA
     Dosage: 1 MG, QD
     Route: 048
     Dates: start: 20021002, end: 20050201
  3. PROPECIA [Suspect]
     Active Substance: FINASTERIDE
     Dosage: 1 MG, QD
     Route: 048
     Dates: start: 2005, end: 200702
  4. FINASTERIDE. [Suspect]
     Active Substance: FINASTERIDE
     Indication: ALOPECIA
     Dosage: 2.5 MG, QD
     Route: 048
     Dates: start: 2007, end: 201101

REACTIONS (23)
  - Overdose [Unknown]
  - Hyperthyroidism [Unknown]
  - Semen volume decreased [Unknown]
  - Scoliosis [Unknown]
  - Sexual dysfunction [Not Recovered/Not Resolved]
  - Erectile dysfunction [Not Recovered/Not Resolved]
  - Disturbance in sexual arousal [Unknown]
  - Intervertebral disc disorder [Unknown]
  - Myelopathy [Unknown]
  - Depression [Not Recovered/Not Resolved]
  - Intervertebral disc operation [Unknown]
  - Gastroenteritis [Recovered/Resolved]
  - Cognitive disorder [Not Recovered/Not Resolved]
  - Mole excision [Unknown]
  - Back disorder [Unknown]
  - Goitre [Unknown]
  - Muscle strain [Unknown]
  - Erectile dysfunction [Unknown]
  - Blood testosterone decreased [Not Recovered/Not Resolved]
  - Wrong technique in product usage process [Unknown]
  - Anorgasmia [Unknown]
  - Viral infection [Recovered/Resolved]
  - Libido decreased [Not Recovered/Not Resolved]

NARRATIVE: CASE EVENT DATE: 2003
